FAERS Safety Report 11316949 (Version 1)
Quarter: 2015Q3

REPORT INFORMATION
  Report Type: Spontaneous
  Country: FR (occurrence: FR)
  Receive Date: 20150728
  Receipt Date: 20150728
  Transmission Date: 20151125
  Serious: Yes (Life-Threatening)
  Sender: FDA-Public Use
  Company Number: FR-BAXTER-2015BAX039473

PATIENT
  Age: 63 Year
  Sex: Male

DRUGS (18)
  1. ENDOXAN 1000 MG, POUDRE POUR SOLUTION INJECTABLE [Suspect]
     Active Substance: CYCLOPHOSPHAMIDE
     Route: 065
     Dates: start: 20110617, end: 20110617
  2. ENDOXAN 1000 MG, POUDRE POUR SOLUTION INJECTABLE [Suspect]
     Active Substance: CYCLOPHOSPHAMIDE
     Route: 065
     Dates: start: 20110708, end: 20110708
  3. ELDISINE [Suspect]
     Active Substance: VINDESINE SULFATE
     Route: 042
     Dates: start: 20110826, end: 20110826
  4. CORTANCYL [Suspect]
     Active Substance: PREDNISONE
     Route: 048
     Dates: start: 20110617
  5. CORTANCYL [Suspect]
     Active Substance: PREDNISONE
     Route: 048
     Dates: start: 20110826
  6. ENDOXAN 1000 MG, POUDRE POUR SOLUTION INJECTABLE [Suspect]
     Active Substance: CYCLOPHOSPHAMIDE
     Route: 065
     Dates: start: 20110729, end: 20110729
  7. ELDISINE [Suspect]
     Active Substance: VINDESINE SULFATE
     Route: 042
     Dates: start: 20110708, end: 20110708
  8. ELDISINE [Suspect]
     Active Substance: VINDESINE SULFATE
     Route: 042
     Dates: start: 20110617, end: 20110617
  9. ELDISINE [Suspect]
     Active Substance: VINDESINE SULFATE
     Route: 042
     Dates: start: 20110729, end: 20110729
  10. ENDOXAN 1000 MG, POUDRE POUR SOLUTION INJECTABLE [Suspect]
     Active Substance: CYCLOPHOSPHAMIDE
     Route: 065
     Dates: start: 20110527, end: 20110527
  11. ELDISINE [Suspect]
     Active Substance: VINDESINE SULFATE
     Route: 042
     Dates: start: 20110527, end: 20110527
  12. ELDISINE [Suspect]
     Active Substance: VINDESINE SULFATE
     Indication: CHRONIC LYMPHOCYTIC LEUKAEMIA
     Route: 042
     Dates: start: 20110502, end: 20110502
  13. CORTANCYL [Suspect]
     Active Substance: PREDNISONE
     Indication: CHRONIC LYMPHOCYTIC LEUKAEMIA
     Route: 048
     Dates: start: 20110502
  14. ENDOXAN 1000 MG, POUDRE POUR SOLUTION INJECTABLE [Suspect]
     Active Substance: CYCLOPHOSPHAMIDE
     Indication: CHRONIC LYMPHOCYTIC LEUKAEMIA
     Route: 065
     Dates: start: 20110502, end: 20110502
  15. ENDOXAN 1000 MG, POUDRE POUR SOLUTION INJECTABLE [Suspect]
     Active Substance: CYCLOPHOSPHAMIDE
     Route: 065
     Dates: start: 20110826, end: 20110826
  16. CORTANCYL [Suspect]
     Active Substance: PREDNISONE
     Route: 048
     Dates: start: 20110527
  17. CORTANCYL [Suspect]
     Active Substance: PREDNISONE
     Route: 048
     Dates: start: 20110708
  18. CORTANCYL [Suspect]
     Active Substance: PREDNISONE
     Route: 048
     Dates: start: 20110729

REACTIONS (1)
  - Acute coronary syndrome [Recovered/Resolved]

NARRATIVE: CASE EVENT DATE: 20110502
